FAERS Safety Report 9669937 (Version 4)
Quarter: 2014Q2

REPORT INFORMATION
  Report Type: Spontaneous
  Country: FR (occurrence: FR)
  Receive Date: 20131105
  Receipt Date: 20140630
  Transmission Date: 20141212
  Serious: Yes (Hospitalization)
  Sender: FDA-Public Use
  Company Number: FR-ELI_LILLY_AND_COMPANY-FR201310008251

PATIENT
  Age: 64 Year
  Sex: Male
  Weight: 88.9 kg

DRUGS (18)
  1. ALIMTA [Suspect]
     Indication: LUNG ADENOCARCINOMA
     Dosage: 500 MG/M2, EVERY 3 WEEKS
     Route: 042
     Dates: start: 20130924
  2. ALIMTA [Suspect]
     Dosage: UNK, CYCLICAL (MAINTENANCE)
     Dates: start: 20140213
  3. ALIMTA [Suspect]
     Dosage: UNK, CYCLICAL  (MAINTENANCE)
     Dates: start: 20140306
  4. ALIMTA [Suspect]
     Dosage: UNK, CYCLICAL   (MAINTENANCE)
     Dates: start: 20140327
  5. CARBOPLATIN [Suspect]
     Indication: LUNG NEOPLASM MALIGNANT
     Dosage: 611 MG, UNKNOWN
     Route: 042
     Dates: start: 20130924
  6. TAHOR [Suspect]
     Indication: PRODUCT USED FOR UNKNOWN INDICATION
     Dosage: 40 MG, QD
     Route: 065
     Dates: start: 20130816, end: 20131022
  7. ZOPICLONE [Suspect]
     Indication: PRODUCT USED FOR UNKNOWN INDICATION
     Dosage: 7.5 MG, QD
     Route: 065
     Dates: start: 20130818, end: 20131022
  8. FLUOXETINE [Suspect]
     Indication: PRODUCT USED FOR UNKNOWN INDICATION
     Dosage: 20 MG, QD
     Route: 065
     Dates: start: 20130816, end: 20131022
  9. DEXAMETHASONE [Concomitant]
     Indication: PREMEDICATION
     Dosage: 4 MG, BID
  10. VITAMIN B12                        /00056201/ [Concomitant]
     Indication: PREMEDICATION
     Dosage: 1000 UG, EVERY 9 WEEKS
     Route: 030
     Dates: start: 20130912
  11. SPECIAFOLDINE [Concomitant]
     Indication: PREMEDICATION
     Dosage: 0.4 MG, UNKNOWN
     Route: 030
     Dates: start: 20130912
  12. PRIMPERAN [Concomitant]
     Indication: PREMEDICATION
     Dosage: UNK
     Dates: start: 20130924
  13. EMEND                              /01627301/ [Concomitant]
     Indication: PREMEDICATION
     Dosage: 125 MG, UNKNOWN
     Dates: start: 20130924, end: 20130924
  14. EMEND                              /01627301/ [Concomitant]
     Dosage: 80 MG, UNKNOWN
     Dates: start: 20130925, end: 20130926
  15. INNOHEP [Concomitant]
     Indication: THROMBOPHLEBITIS
     Dosage: 160 MG, QD
     Route: 058
     Dates: start: 20130816
  16. KARDEGIC [Concomitant]
     Indication: CEREBROVASCULAR ACCIDENT
     Dosage: 160 MG, UNKNOWN
     Route: 048
     Dates: start: 20130816
  17. INEXIUM                            /01479302/ [Concomitant]
     Indication: PRODUCT USED FOR UNKNOWN INDICATION
     Dosage: 20 MG, QD
     Dates: start: 20130816
  18. ATARAX                             /00058401/ [Concomitant]
     Indication: PRODUCT USED FOR UNKNOWN INDICATION
     Dosage: 25 DF, QID
     Dates: start: 20131022

REACTIONS (6)
  - Hepatocellular injury [Recovered/Resolved]
  - Hypoacusis [Recovered/Resolved]
  - Dysphonia [Recovered/Resolved]
  - Anaemia [Recovered/Resolved]
  - Anaemia [Unknown]
  - Off label use [Unknown]
